FAERS Safety Report 25741420 (Version 2)
Quarter: 2025Q3

REPORT INFORMATION
  Report Type: Report from Study
  Country: US (occurrence: US)
  Receive Date: 20250829
  Receipt Date: 20250922
  Transmission Date: 20251020
  Serious: Yes (Other)
  Sender: GALDERMA
  Company Number: US-GALDERMA-US2025015808

PATIENT

DRUGS (2)
  1. NEMOLIZUMAB [Suspect]
     Active Substance: NEMOLIZUMAB
     Indication: Neurodermatitis
     Route: 058
     Dates: start: 202501, end: 202501
  2. NEMOLIZUMAB [Suspect]
     Active Substance: NEMOLIZUMAB
     Route: 058
     Dates: start: 20250822, end: 20250822

REACTIONS (11)
  - Rocky mountain spotted fever [Unknown]
  - Neurodermatitis [Not Recovered/Not Resolved]
  - Lip exfoliation [Unknown]
  - Pruritus [Unknown]
  - Sensory loss [Unknown]
  - Headache [Not Recovered/Not Resolved]
  - Skin lesion [Unknown]
  - Skin haemorrhage [Unknown]
  - Gingival recession [Unknown]
  - Drug ineffective [Unknown]
  - Inappropriate schedule of product administration [Recovered/Resolved]

NARRATIVE: CASE EVENT DATE: 20250101
